FAERS Safety Report 4681568-7 (Version None)
Quarter: 2005Q2

REPORT INFORMATION
  Report Type: 
  Country: None (occurrence: None)
  Receive Date: 20050602
  Receipt Date: 20050519
  Transmission Date: 20051028
  Serious: Yes (Hospitalization, Other)
  Sender: FDA-Public Use
  Company Number: 2005077258

PATIENT
  Age: 49 Year
  Sex: Female
  Weight: 107.0489 kg

DRUGS (8)
  1. CELEBREX [Suspect]
     Indication: BACK PAIN
     Dosage: 200 MG (200 MG 1 IN 1 D) ORAL
     Route: 048
     Dates: start: 19990101, end: 19990101
  2. BEXTRA [Suspect]
     Indication: ARTHRALGIA
     Dosage: 20 MG (20 MG 1 IN 1 D) ORAL
     Route: 048
  3. BENADRYL [Suspect]
     Indication: PRURITUS
     Dosage: ORAL
     Route: 048
     Dates: start: 19990101
  4. MOTRIN [Suspect]
     Indication: BACK PAIN
     Dosage: 2400 MG (800 MG 3 IN 1 D) ORAL
     Route: 048
  5. ADVIL [Suspect]
     Indication: BACK PAIN
     Dosage: ORAL
     Route: 048
  6. OXYCONTIN [Suspect]
     Indication: BACK PAIN
     Dosage: ORAL
     Route: 048
  7. PRILOSEC [Concomitant]
  8. TRAZODONE HCL [Concomitant]

REACTIONS (10)
  - ABNORMAL BEHAVIOUR [None]
  - COMA [None]
  - DEEP VEIN THROMBOSIS [None]
  - DRUG HYPERSENSITIVITY [None]
  - DRUG INEFFECTIVE [None]
  - GASTRIC ULCER [None]
  - GASTRITIS [None]
  - OESOPHAGITIS [None]
  - SCRATCH [None]
  - SPEECH DISORDER [None]
